FAERS Safety Report 5314841-X (Version None)
Quarter: 2007Q2

REPORT INFORMATION
  Report Type: 
  Country: None (occurrence: None)
  Receive Date: 20070502
  Receipt Date: 20070430
  Transmission Date: 20071010
  Serious: Yes (Other)
  Sender: FDA-Public Use
  Company Number: FR-ELI_LILLY_AND_COMPANY-FR200702005406

PATIENT
  Age: 55 Year
  Sex: Male
  Weight: 68 kg

DRUGS (8)
  1. NEULASTA [Concomitant]
     Dosage: UNK, UNKNOWN
     Route: 065
     Dates: start: 20070207, end: 20070207
  2. MOTILYO [Concomitant]
     Dosage: UNK, UNKNOWN
     Route: 048
     Dates: start: 20070207
  3. INNOHEP [Concomitant]
     Dosage: UNK, UNKNOWN
     Route: 065
     Dates: start: 20070101
  4. LOVENOX [Concomitant]
     Dosage: UNK, UNKNOWN
     Route: 048
     Dates: start: 20070101
  5. ALIMTA [Suspect]
     Indication: METASTATIC BRONCHIAL CARCINOMA
     Dosage: 890 MG, OTHER
     Route: 042
     Dates: start: 20070206
  6. FOLIC ACID [Concomitant]
     Indication: VITAMIN SUPPLEMENTATION
     Dosage: UNK, UNKNOWN
     Route: 065
  7. VITAMIN B-12 [Concomitant]
     Indication: VITAMIN SUPPLEMENTATION
     Dosage: UNK, UNKNOWN
     Route: 065
  8. DEXAMETHASONE 0.5MG TAB [Concomitant]
     Indication: PROPHYLAXIS
     Dosage: UNK, UNKNOWN
     Route: 065

REACTIONS (1)
  - RESTLESS LEGS SYNDROME [None]
